FAERS Safety Report 11691787 (Version 2)
Quarter: 2016Q2

REPORT INFORMATION
  Report Type: Spontaneous
  Country: US (occurrence: US)
  Receive Date: 20151103
  Receipt Date: 20160418
  Transmission Date: 20160815
  Serious: No
  Sender: FDA-Public Use
  Company Number: US-OTSUKA-2015_009542

PATIENT
  Age: 31 Year
  Sex: Female

DRUGS (2)
  1. REXULTI [Suspect]
     Active Substance: BREXPIPRAZOLE
     Dosage: 1 MG, A DAY FOR 1 WEEK
     Route: 065
     Dates: start: 201509
  2. REXULTI [Suspect]
     Active Substance: BREXPIPRAZOLE
     Indication: MAJOR DEPRESSION
     Dosage: 0.5 MG, A DAY FOR 1 WEEK
     Route: 065
     Dates: start: 20150827, end: 201509

REACTIONS (4)
  - Choking [Unknown]
  - Cough [Unknown]
  - Dysphagia [Unknown]
  - Hypersensitivity [Unknown]

NARRATIVE: CASE EVENT DATE: 2015
